FAERS Safety Report 15669079 (Version 1)
Quarter: 2018Q4

REPORT INFORMATION
  Report Type: Spontaneous
  Country: US (occurrence: US)
  Receive Date: 20181119
  Receipt Date: 20181119
  Transmission Date: 20190205
  Serious: No
  Sender: FDA-Public Use
  Company Number: None

PATIENT
  Age: 57 Year
  Sex: Female

DRUGS (1)
  1. GLATIRAMER  40MG PFS INJ (12/BOX) [Suspect]
     Active Substance: GLATIRAMER
     Indication: MULTIPLE SCLEROSIS
     Dates: start: 201701

REACTIONS (3)
  - Multiple sclerosis relapse [None]
  - Amnesia [None]
  - Product dose omission [None]

NARRATIVE: CASE EVENT DATE: 20181109
